FAERS Safety Report 9238534 (Version 1)
Quarter: 2013Q2

REPORT INFORMATION
  Report Type: Spontaneous
  Country: FR (occurrence: FR)
  Receive Date: 20130418
  Receipt Date: 20130418
  Transmission Date: 20140414
  Serious: Yes (Hospitalization)
  Sender: FDA-Public Use
  Company Number: FR-SANOFI-AVENTIS-2013SA037846

PATIENT
  Age: 76 Year
  Sex: Female

DRUGS (12)
  1. STILNOX [Suspect]
     Indication: PRODUCT USED FOR UNKNOWN INDICATION
     Route: 048
     Dates: end: 20121215
  2. TRANXENE [Suspect]
     Indication: PRODUCT USED FOR UNKNOWN INDICATION
     Route: 048
     Dates: end: 20121215
  3. LYSANXIA [Suspect]
     Indication: AGITATION
     Route: 048
     Dates: start: 20121213, end: 20121215
  4. ORAMORPH [Suspect]
     Indication: AGITATION
     Route: 048
     Dates: start: 20121213, end: 20121215
  5. AMLOR [Concomitant]
     Route: 048
  6. APROVEL [Concomitant]
     Route: 048
  7. INEXIUM [Concomitant]
     Route: 048
  8. CARDENSIEL [Concomitant]
     Route: 048
  9. LEVOTHYROX [Concomitant]
     Route: 048
  10. EUPRESSYL [Concomitant]
     Route: 048
  11. EFFERALGAN [Concomitant]
     Route: 048
  12. PLAVIX [Concomitant]
     Route: 048

REACTIONS (2)
  - Bradypnoea [Recovered/Resolved]
  - Somnolence [Recovered/Resolved]
